FAERS Safety Report 12647085 (Version 1)
Quarter: 2016Q3

REPORT INFORMATION
  Report Type: Spontaneous
  Country: US (occurrence: None)
  Receive Date: 20160811
  Receipt Date: 20160811
  Transmission Date: 20161109
  Serious: Yes (Disabling, Other)
  Sender: FDA-Public Use
  Company Number: None

PATIENT
  Age: 52 Year
  Sex: Male
  Weight: 92.08 kg

DRUGS (5)
  1. AMIODARONE, 200 MG [Suspect]
     Active Substance: AMIODARONE
     Indication: ATRIAL FIBRILLATION
     Route: 048
     Dates: start: 20140401, end: 20140923
  2. FLECAINIDE [Concomitant]
     Active Substance: FLECAINIDE
  3. ASPIRIN. [Concomitant]
     Active Substance: ASPIRIN
  4. METOPROLOL SUCCINATE. [Concomitant]
     Active Substance: METOPROLOL SUCCINATE
  5. VITAFUSION MULTIVITES VITAMINS [Concomitant]

REACTIONS (4)
  - Visual field defect [None]
  - Impaired work ability [None]
  - Papilloedema [None]
  - Photopsia [None]

NARRATIVE: CASE EVENT DATE: 20140923
